FAERS Safety Report 7252463 (Version 7)
Quarter: 2014Q1

REPORT INFORMATION
  Report Type: Spontaneous
  Country: US (occurrence: US)
  Receive Date: 20100122
  Receipt Date: 20140131
  Transmission Date: 20141002
  Serious: Yes (Hospitalization, Other)
  Sender: FDA-Public Use
  Company Number: US-BAYER-201011743NA

PATIENT
  Age: 23 Year
  Sex: Female
  Weight: 73 kg

DRUGS (24)
  1. YAZ [Suspect]
     Indication: ORAL CONTRACEPTION
     Dosage: UNK UNK, QD
     Route: 048
     Dates: start: 20071120, end: 200905
  2. YAZ [Suspect]
     Indication: ORAL CONTRACEPTION
     Dosage: UNK
     Dates: start: 200906
  3. YAZ [Suspect]
     Indication: ORAL CONTRACEPTION
     Route: 048
     Dates: start: 20090702, end: 20090802
  4. YAZ [Suspect]
     Indication: ORAL CONTRACEPTION
     Dosage: UNK
     Dates: start: 200909
  5. AZITHROMYCIN [Concomitant]
  6. PULMICORT [Concomitant]
  7. NAPROXEN [Concomitant]
  8. ZYBAN [Concomitant]
     Dosage: 300 MG (DAILY DOSE), BID, ORAL
     Route: 048
     Dates: start: 20080904, end: 20090408
  9. PHENERGAN [Concomitant]
     Route: 048
     Dates: start: 20080701, end: 200904
  10. FIORICET [Concomitant]
     Indication: PAIN
     Dosage: 50-325-40MG
     Route: 048
     Dates: end: 20090408
  11. MULTIVITAMIN AND MINERAL SUPPLEMENT [Concomitant]
     Indication: PRODUCT USED FOR UNKNOWN INDICATION
     Route: 048
     Dates: start: 20070717, end: 20090408
  12. TAMIFLU [Concomitant]
     Indication: VIRAL INFECTION
  13. TYLENOL [PARACETAMOL] [Concomitant]
     Indication: VIRAL INFECTION
  14. COUGH AND COLD PREPARATIONS [Concomitant]
     Indication: VIRAL INFECTION
  15. AMOXICILLIN [Concomitant]
     Indication: VIRAL INFECTION
     Dosage: 500 MG (DAILY DOSE), ,
     Dates: start: 20080217
  16. PANTOPRAZOLE [Concomitant]
  17. IMITREX [Concomitant]
     Indication: MIGRAINE
     Dates: start: 200804
  18. GUAIFENESIN W/PSEUDOEPHEDRINE [Concomitant]
  19. TRAMADOL HYDROCHLORIDE [Concomitant]
     Dates: start: 20080216
  20. TORADOL [Concomitant]
     Dosage: UNK
     Dates: start: 20080217
  21. IRON W/VITAMINS NOS [Concomitant]
     Route: 048
     Dates: start: 20070717, end: 20090408
  22. ROBITUSSIN A C [CODEINE PHOSPHATE,GUAIFENESIN,PHENIRAMINE MALEATE] [Concomitant]
  23. PROFEN FORTE DM [Concomitant]
  24. TRAMADOL HCL CF [Concomitant]
     Dates: start: 20080216

REACTIONS (11)
  - Cholelithiasis [None]
  - Cholecystitis [None]
  - Pancreatitis [Unknown]
  - Pyrexia [None]
  - Vomiting [None]
  - Abdominal pain upper [None]
  - Abdominal pain upper [None]
  - Nausea [None]
  - Vomiting [None]
  - Asthenia [None]
  - Abdominal pain upper [Unknown]
